FAERS Safety Report 25984351 (Version 1)
Quarter: 2025Q4

REPORT INFORMATION
  Report Type: Spontaneous
  Country: US (occurrence: US)
  Receive Date: 20251031
  Receipt Date: 20251031
  Transmission Date: 20260118
  Serious: Yes (Other)
  Sender: ROCHE
  Company Number: US-ROCHE-10000420160

PATIENT
  Sex: Female

DRUGS (3)
  1. XOLAIR [Suspect]
     Active Substance: OMALIZUMAB
     Indication: Urticaria chronic
     Route: 065
  2. REMIBRUTINIB [Concomitant]
     Active Substance: REMIBRUTINIB
  3. BARZOLVOLIMAB [Concomitant]
     Active Substance: BARZOLVOLIMAB

REACTIONS (2)
  - Therapy non-responder [Unknown]
  - Angioedema [Unknown]
